FAERS Safety Report 10659734 (Version 3)
Quarter: 2015Q1

REPORT INFORMATION
  Report Type: Spontaneous
  Country: US (occurrence: US)
  Receive Date: 20141217
  Receipt Date: 20150129
  Transmission Date: 20150720
  Serious: Yes (Death)
  Sender: FDA-Public Use
  Company Number: US-PFIZER INC-2014343976

PATIENT
  Age: 63 Year
  Sex: Female

DRUGS (1)
  1. XALKORI [Suspect]
     Active Substance: CRIZOTINIB
     Indication: NEOPLASM MALIGNANT
     Dosage: 10 MG, 2X/DAY
     Dates: start: 201405

REACTIONS (2)
  - Neoplasm malignant [Fatal]
  - Disease progression [Fatal]

NARRATIVE: CASE EVENT DATE: 20140809
